FAERS Safety Report 11323918 (Version 1)
Quarter: 2015Q3

REPORT INFORMATION
  Report Type: Spontaneous
  Country: US (occurrence: US)
  Receive Date: 20150730
  Receipt Date: 20150730
  Transmission Date: 20151125
  Serious: Yes (Hospitalization)
  Sender: FDA-Public Use
  Company Number: US-BAUSCH-BL-2015-018022

PATIENT
  Age: 50 Year
  Sex: Female

DRUGS (3)
  1. POTASSIUM [Concomitant]
     Active Substance: POTASSIUM
     Indication: BLOOD POTASSIUM DECREASED
     Route: 048
     Dates: start: 20150517, end: 20150717
  2. XIFAXAN [Suspect]
     Active Substance: RIFAXIMIN
     Indication: HEPATIC ENCEPHALOPATHY
     Route: 048
     Dates: start: 20150517
  3. GENERLAC [Concomitant]
     Active Substance: LACTULOSE
     Indication: HEPATIC CIRRHOSIS
     Route: 048
     Dates: start: 20150517, end: 20150717

REACTIONS (7)
  - Mouth haemorrhage [Recovering/Resolving]
  - Hypotension [Recovering/Resolving]
  - White blood cell count increased [Recovering/Resolving]
  - Renal impairment [Recovering/Resolving]
  - Dyspnoea [Recovering/Resolving]
  - Blood potassium increased [Recovering/Resolving]
  - Paralysis [Recovering/Resolving]

NARRATIVE: CASE EVENT DATE: 20150717
